FAERS Safety Report 6924777-6 (Version None)
Quarter: 2010Q3

REPORT INFORMATION
  Report Type: 
  Country: None (occurrence: None)
  Receive Date: 20100816
  Receipt Date: 20100804
  Transmission Date: 20110219
  Serious: No
  Sender: FDA-Public Use
  Company Number: US-BIOGENIDEC-2010BI027261

PATIENT
  Age: 56 Year
  Sex: Female

DRUGS (1)
  1. AVONEX [Suspect]
     Indication: MULTIPLE SCLEROSIS
     Route: 030
     Dates: start: 20050722

REACTIONS (7)
  - ASTIGMATISM [None]
  - FATIGUE [None]
  - GLAUCOMA [None]
  - HYPOAESTHESIA [None]
  - MYOPIA [None]
  - PARAESTHESIA [None]
  - VISION BLURRED [None]
